FAERS Safety Report 10549936 (Version 1)
Quarter: 2014Q4

REPORT INFORMATION
  Report Type: Spontaneous
  Country: US (occurrence: US)
  Receive Date: 20141028
  Receipt Date: 20141028
  Transmission Date: 20150529
  Serious: Yes (Hospitalization, Other)
  Sender: FDA-Public Use
  Company Number: US-PFIZER INC-2014292665

PATIENT
  Age: 53 Year
  Sex: Female
  Weight: 72.6 kg

DRUGS (4)
  1. WARFARIN [Concomitant]
     Active Substance: WARFARIN
     Dosage: UNK
  2. REVATIO [Suspect]
     Active Substance: SILDENAFIL CITRATE
     Dosage: UNK
     Dates: end: 2014
  3. REMODULIN [Suspect]
     Active Substance: TREPROSTINIL
     Indication: PULMONARY ARTERIAL HYPERTENSION
     Dosage: 0.059 UG/KG, UNK
     Route: 041
     Dates: start: 20110520
  4. REMODULIN [Suspect]
     Active Substance: TREPROSTINIL
     Dosage: 0.059 UG/KG, UNK
     Route: 041
     Dates: start: 20110619

REACTIONS (9)
  - Device damage [Unknown]
  - Blood viscosity increased [Unknown]
  - Blood pressure decreased [Unknown]
  - Pyrexia [Unknown]
  - Pneumonia klebsiella [Unknown]
  - Bacteraemia [Unknown]
  - Medical device complication [Unknown]
  - Headache [Unknown]
  - Drug dose omission [Unknown]

NARRATIVE: CASE EVENT DATE: 2014
